FAERS Safety Report 20455204 (Version 2)
Quarter: 2022Q1

REPORT INFORMATION
  Report Type: Spontaneous
  Country: US (occurrence: US)
  Receive Date: 20220210
  Receipt Date: 20220214
  Transmission Date: 20220424
  Serious: Yes (Life-Threatening, Hospitalization, Other)
  Sender: FDA-Public Use
  Company Number: US-MLMSERVICE-20220126-3338679-1

PATIENT
  Age: 39 Year
  Sex: Female

DRUGS (1)
  1. AMLODIPINE [Suspect]
     Active Substance: AMLODIPINE BESYLATE
     Dosage: 300 MG, SINGLE, AT LEAST

REACTIONS (10)
  - Intentional overdose [Recovering/Resolving]
  - Non-cardiogenic pulmonary oedema [Recovered/Resolved]
  - Pulmonary alveolar haemorrhage [Recovered/Resolved]
  - Tachycardia [Recovering/Resolving]
  - Hypotension [Recovering/Resolving]
  - Acute kidney injury [Recovering/Resolving]
  - Electrocardiogram T wave abnormal [Recovering/Resolving]
  - Hypervolaemia [Recovering/Resolving]
  - Hypertension [Recovered/Resolved]
  - Pneumonia aspiration [Recovered/Resolved]
